FAERS Safety Report 4268892-7 (Version None)
Quarter: 2004Q1

REPORT INFORMATION
  Report Type: 
  Country: None (occurrence: None)
  Receive Date: 20040108
  Receipt Date: 20031223
  Transmission Date: 20041129
  Serious: Yes (Disabling)
  Sender: FDA-Public Use
  Company Number: HQ4914829OCT2002

PATIENT
  Age: 54 Year
  Sex: Male

DRUGS (2)
  1. DIMETAPP [Suspect]
     Dosage: ORAL
     Route: 048
  2. ROBITUSSIN CF (GUAIFENESIN/DEXTROMETHORPHAN/PHENYLPROPANOLAMINE, SYRUP [Suspect]
     Indication: NASOPHARYNGITIS
     Dosage: ORAL
     Route: 048
     Dates: start: 20001115

REACTIONS (1)
  - HAEMORRHAGIC STROKE [None]
